FAERS Safety Report 14758022 (Version 1)
Quarter: 2018Q2

REPORT INFORMATION
  Report Type: Spontaneous
  Country: US (occurrence: US)
  Receive Date: 20180413
  Receipt Date: 20180413
  Transmission Date: 20180711
  Serious: Yes (Other)
  Sender: FDA-Public Use
  Company Number: US-NOVOPROD-581163

PATIENT
  Age: 56 Year
  Sex: Male
  Weight: 81.63 kg

DRUGS (2)
  1. TRESIBA FLEXTOUCH U200 [Suspect]
     Active Substance: INSULIN DEGLUDEC
     Dosage: 50 U, QD AT BEDTIME AND INCREASE BY 2 U EVERY OTHER NIGHT IF SUGARS GREATER THAN 140 IN THE MORNING
     Route: 058
     Dates: start: 201712, end: 201801
  2. TRESIBA FLEXTOUCH U200 [Suspect]
     Active Substance: INSULIN DEGLUDEC
     Indication: TYPE 2 DIABETES MELLITUS
     Dosage: 50 U, QD AT BEDTIME AND INCREASE BY 2 U EVERY OTHER NIGHT IF SUGARS GREATER THAN 140 IN THE MORNING
     Route: 058
     Dates: start: 201712, end: 201801

REACTIONS (6)
  - Blood glucose decreased [Recovered/Resolved]
  - Asthenia [Recovered/Resolved]
  - Blood glucose increased [Recovered/Resolved]
  - Chest pain [Recovered/Resolved]
  - Glycosylated haemoglobin increased [Unknown]
  - Blood pressure increased [Recovered/Resolved]

NARRATIVE: CASE EVENT DATE: 20170102
